FAERS Safety Report 14228471 (Version 1)
Quarter: 2017Q4

REPORT INFORMATION
  Report Type: Report from Study
  Country: US (occurrence: US)
  Receive Date: 20171127
  Receipt Date: 20171127
  Transmission Date: 20180321
  Serious: Yes (Other)
  Sender: FDA-Public Use
  Company Number: US-CIPLA LTD.-2017US21537

PATIENT

DRUGS (2)
  1. IRINOTECAN [Suspect]
     Active Substance: IRINOTECAN
     Indication: NEUROBLASTOMA
     Dosage: 40 MG/M2/DAY, ON DAYS 1 TO 5, OF EACH 21-DAY CYCLE, TWO CYCLES
     Route: 042
  2. BORTEZOMIB [Suspect]
     Active Substance: BORTEZOMIB
     Indication: NEUROBLASTOMA
     Dosage: 1.2 MG/M2/DAY ON DAYS 1, 4, 8, AND 11 OF EACH 21-DAY, TWO CYCLES
     Route: 042

REACTIONS (1)
  - Disease progression [Unknown]
